FAERS Safety Report 10567693 (Version 1)
Quarter: 2014Q4

REPORT INFORMATION
  Report Type: Spontaneous
  Country: US (occurrence: None)
  Receive Date: 20141105
  Receipt Date: 20141105
  Transmission Date: 20150529
  Serious: No
  Sender: FDA-Public Use
  Company Number: None

PATIENT
  Age: 90 Year
  Sex: Male

DRUGS (2)
  1. LIDOCAINE. [Suspect]
     Active Substance: LIDOCAINE
     Indication: DIABETIC NEUROPATHY
     Dosage: 1, TWICE DAILY, APPLIED AS MEDICATED PATCH TO SKIN
     Dates: start: 20141102, end: 20141102
  2. LIDOCAINE. [Suspect]
     Active Substance: LIDOCAINE
     Indication: PAIN IN EXTREMITY
     Dosage: 1, TWICE DAILY, APPLIED AS MEDICATED PATCH TO SKIN
     Dates: start: 20141102, end: 20141102

REACTIONS (4)
  - Product quality issue [None]
  - Product formulation issue [None]
  - Product substitution issue [None]
  - Drug ineffective [None]

NARRATIVE: CASE EVENT DATE: 20141102
